FAERS Safety Report 5977760-1 (Version None)
Quarter: 2008Q4

REPORT INFORMATION
  Report Type: 
  Country: None (occurrence: None)
  Receive Date: 20081203
  Receipt Date: 20081127
  Transmission Date: 20090506
  Serious: Yes (Disabling)
  Sender: FDA-Public Use
  Company Number: DE-BAXTER-2008BH012235

PATIENT
  Age: 49 Year
  Sex: Male
  Weight: 79 kg

DRUGS (3)
  1. ENDOXAN BAXTER [Suspect]
     Indication: SYSTEMIC LUPUS ERYTHEMATOSUS
     Dosage: DOSE UNIT:UNKNOWN
     Route: 042
     Dates: start: 20080819, end: 20080819
  2. ENDOXAN BAXTER [Suspect]
     Indication: CRYOGLOBULINAEMIA
     Dosage: DOSE UNIT:UNKNOWN
     Route: 042
     Dates: start: 20080819, end: 20080819
  3. PREDNISOLONE [Concomitant]
     Indication: SYSTEMIC LUPUS ERYTHEMATOSUS
     Route: 048

REACTIONS (4)
  - CONDITION AGGRAVATED [None]
  - DYSAESTHESIA [None]
  - PRURITUS [None]
  - SKIN BURNING SENSATION [None]
